FAERS Safety Report 8793343 (Version 1)
Quarter: 2012Q4

REPORT INFORMATION
  Report Type: Report from Study
  Country: IT (occurrence: IT)
  Receive Date: 20120917
  Receipt Date: 20120917
  Transmission Date: 20130627
  Serious: Yes (Hospitalization)
  Sender: FDA-Public Use
  Company Number: IT-BRISTOL-MYERS SQUIBB COMPANY-16937666

PATIENT
  Age: 47 Year
  Sex: Female

DRUGS (3)
  1. IPILIMUMAB [Suspect]
     Indication: MALIGNANT MELANOMA
     Dosage: Last dose on 11Oct2011
     Route: 042
     Dates: start: 20110808, end: 20111010
  2. PREDNISONE [Concomitant]
  3. OMEPRAZOLE [Concomitant]

REACTIONS (1)
  - Anaemia [Not Recovered/Not Resolved]
